FAERS Safety Report 17055936 (Version 1)
Quarter: 2019Q4

REPORT INFORMATION
  Report Type: Spontaneous
  Country: US (occurrence: US)
  Receive Date: 20191120
  Receipt Date: 20191120
  Transmission Date: 20200122
  Serious: No
  Sender: FDA-Public Use
  Company Number: US-JNJFOC-20191125011

PATIENT
  Age: 22 Year
  Sex: Male
  Weight: 104.42 kg

DRUGS (2)
  1. MENS ROGAINE EXTRA STRENGTH [Suspect]
     Active Substance: MINOXIDIL
     Route: 065
  2. MENS ROGAINE EXTRA STRENGTH [Suspect]
     Active Substance: MINOXIDIL
     Indication: ALOPECIA
     Dosage: THE RECOMMENDED AMOUNT/ HALF A CAPFUL TWICE DAILY?THE PRODUCT LAST ADMINISTERED ON 13/NOV/2019
     Route: 061
     Dates: start: 20190710

REACTIONS (1)
  - Alopecia [Not Recovered/Not Resolved]
